FAERS Safety Report 22761640 (Version 4)
Quarter: 2025Q2

REPORT INFORMATION
  Report Type: Spontaneous
  Country: US (occurrence: US)
  Receive Date: 20230728
  Receipt Date: 20250515
  Transmission Date: 20250716
  Serious: No
  Sender: PFIZER
  Company Number: US-PFIZER INC-PV202300129395

PATIENT
  Age: 73 Year
  Sex: Female
  Weight: 84.7 kg

DRUGS (3)
  1. IBRANCE [Suspect]
     Active Substance: PALBOCICLIB
     Indication: Breast cancer female
     Route: 048
  2. IBRANCE [Suspect]
     Active Substance: PALBOCICLIB
     Indication: Neoplasm malignant
     Route: 048
  3. LETROZOLE [Suspect]
     Active Substance: LETROZOLE
     Dates: end: 202307

REACTIONS (1)
  - Muscle spasms [Unknown]
